FAERS Safety Report 22644427 (Version 7)
Quarter: 2023Q4

REPORT INFORMATION
  Report Type: Spontaneous
  Country: PT (occurrence: PT)
  Receive Date: 20230627
  Receipt Date: 20231006
  Transmission Date: 20240109
  Serious: Yes (Hospitalization, Other)
  Sender: FDA-Public Use
  Company Number: PT-MYLANLABS-2023M1057406

PATIENT
  Age: 57 Year
  Sex: Male

DRUGS (6)
  1. AZITHROMYCIN [Suspect]
     Active Substance: AZITHROMYCIN
     Indication: Respiratory failure
     Dosage: UNK
     Route: 048
  2. AZITHROMYCIN [Suspect]
     Active Substance: AZITHROMYCIN
     Indication: COVID-19
  3. AZITHROMYCIN [Suspect]
     Active Substance: AZITHROMYCIN
     Indication: Antibiotic therapy
  4. CEFTRIAXONE [Concomitant]
     Active Substance: CEFTRIAXONE\CEFTRIAXONE SODIUM
     Indication: COVID-19
     Dosage: UNK
     Route: 065
  5. CEFTRIAXONE [Concomitant]
     Active Substance: CEFTRIAXONE\CEFTRIAXONE SODIUM
     Indication: Antibiotic therapy
  6. CEFTRIAXONE [Concomitant]
     Active Substance: CEFTRIAXONE\CEFTRIAXONE SODIUM
     Indication: Respiratory failure

REACTIONS (10)
  - Drug-induced liver injury [Recovered/Resolved with Sequelae]
  - Liver injury [Not Recovered/Not Resolved]
  - Confusional state [Unknown]
  - Altered state of consciousness [Recovered/Resolved]
  - Steatohepatitis [Recovered/Resolved]
  - Encephalopathy [Not Recovered/Not Resolved]
  - Condition aggravated [Recovered/Resolved]
  - Jaundice [Recovered/Resolved]
  - Blood bilirubin increased [Recovered/Resolved]
  - Hepatic function abnormal [Recovered/Resolved]
